FAERS Safety Report 18540765 (Version 1)
Quarter: 2020Q4

REPORT INFORMATION
  Report Type: Report from Study
  Country: AU (occurrence: AU)
  Receive Date: 20201124
  Receipt Date: 20201124
  Transmission Date: 20210114
  Serious: Yes (Other)
  Sender: FDA-Public Use
  Company Number: AU-ASTRAZENECA-2020SF53005

PATIENT
  Age: 799 Month
  Sex: Male
  Weight: 82 kg

DRUGS (6)
  1. MICARDIS [Concomitant]
     Active Substance: TELMISARTAN
     Dosage: 80/12.5MG DAILY
  2. ASPIRIN. [Concomitant]
     Active Substance: ASPIRIN
  3. BENRALIZUMAB. [Suspect]
     Active Substance: BENRALIZUMAB
     Indication: ASTHMA
     Dosage: 30.0MG UNKNOWN
     Route: 058
     Dates: start: 20200428
  4. ALVESCO [Concomitant]
     Active Substance: CICLESONIDE
     Dosage: 160MCG, II INHALED MANE
     Route: 055
  5. ATENOLOL. [Concomitant]
     Active Substance: ATENOLOL
  6. CRESTOR [Concomitant]
     Active Substance: ROSUVASTATIN CALCIUM

REACTIONS (6)
  - Sensitive skin [Unknown]
  - Skin irritation [Unknown]
  - Alcohol intolerance [Unknown]
  - Hordeolum [Unknown]
  - Lip swelling [Unknown]
  - Food intolerance [Unknown]

NARRATIVE: CASE EVENT DATE: 202005
